FAERS Safety Report 6526536-5 (Version None)
Quarter: 2009Q4

REPORT INFORMATION
  Report Type: 
  Country: None (occurrence: None)
  Receive Date: 20091229
  Receipt Date: 20091215
  Transmission Date: 20100525
  Serious: Yes (Other)
  Sender: FDA-Public Use
  Company Number: PAR_03292_2009

PATIENT
  Age: 31 Year
  Sex: Male
  Weight: 60.3284 kg

DRUGS (2)
  1. MEGACE ES [Suspect]
     Indication: UNDERWEIGHT
     Dosage: (5 ML, [5 CC] ORAL), (DF, ^TAPERED OFF^ ORAL)
     Route: 048
     Dates: start: 20090901, end: 20091205
  2. MEGACE ES [Suspect]
     Indication: UNDERWEIGHT
     Dosage: (5 ML, [5 CC] ORAL), (DF, ^TAPERED OFF^ ORAL)
     Route: 048
     Dates: start: 20091206, end: 20091210

REACTIONS (7)
  - DYSPNOEA [None]
  - DYSPNOEA EXERTIONAL [None]
  - HYPERHIDROSIS [None]
  - LIBIDO DECREASED [None]
  - MUSCLE SPASMS [None]
  - SEXUAL DYSFUNCTION [None]
  - WITHDRAWAL SYNDROME [None]
